FAERS Safety Report 15429613 (Version 1)
Quarter: 2018Q3

REPORT INFORMATION
  Report Type: Spontaneous
  Country: US (occurrence: US)
  Receive Date: 20180926
  Receipt Date: 20180926
  Transmission Date: 20181010
  Serious: No
  Sender: FDA-Public Use
  Company Number: US-PFIZER INC-2018386721

PATIENT
  Age: 55 Year
  Sex: Male
  Weight: 127 kg

DRUGS (3)
  1. LEVOCARNITINE. [Concomitant]
     Active Substance: LEVOCARNITINE
     Dosage: 330 MG, 3X/DAY
  2. RENA?VITE [Concomitant]
     Active Substance: ASCORBIC ACID\BIOTIN\CALCIUM PANTOTHENATE\CYANOCOBALAMIN\FOLIC ACID\NIACINAMIDE\PYRIDOXINE HYDROCHLORIDE\RIBOFLAVIN\THIAMINE MONONITRATE
     Indication: RENAL DISORDER
     Dosage: UNK, 1X/DAY
  3. SUTENT [Suspect]
     Active Substance: SUNITINIB MALATE
     Indication: RENAL CANCER
     Dosage: 37 MG, DAILY

REACTIONS (5)
  - Dry eye [Unknown]
  - Dizziness [Unknown]
  - Photosensitivity reaction [Unknown]
  - Neoplasm progression [Unknown]
  - Dry mouth [Unknown]
